FAERS Safety Report 7831875-1 (Version None)
Quarter: 2011Q4

REPORT INFORMATION
  Report Type: 
  Country: None (occurrence: None)
  Receive Date: 20111021
  Receipt Date: 20111017
  Transmission Date: 20120403
  Serious: Yes (Hospitalization, Other)
  Sender: FDA-Public Use
  Company Number: GB-B.I. PHARMACEUTICALS,INC./RIDGEFIELD-2011-UK-00998UK

PATIENT
  Sex: Female

DRUGS (14)
  1. OMEPRAZOLE [Concomitant]
     Indication: PROPHYLAXIS AGAINST GASTROINTESTINAL ULCER
     Dosage: 20 MG
     Route: 048
  2. ACETAMINOPHEN [Concomitant]
     Indication: ANALGESIC THERAPY
     Dosage: 4 G
     Route: 048
  3. ROSUVASTATIN [Concomitant]
     Indication: HYPERTENSION
     Dosage: 5 MG
     Route: 048
  4. FELODIPINE [Concomitant]
     Indication: HYPERTENSION
     Dosage: 10 MG
     Route: 048
  5. DABIGATRAN [Suspect]
     Indication: KNEE ARTHROPLASTY
     Dosage: 220 MG
     Route: 048
     Dates: start: 20110912, end: 20110919
  6. DIHYDROCODEINE BITARTRATE INJ [Concomitant]
     Indication: ANALGESIC THERAPY
     Dosage: 30 MG
     Route: 048
  7. AMOXICILLIN AND CLAVULANATE POTASSIUM [Concomitant]
     Dosage: 1.2 G
  8. POTASSIUM CITRATE [Concomitant]
     Dosage: 5-10 ML
  9. OXYCODONE MODIFIED RELEASE [Concomitant]
     Dosage: 10 MG
  10. CEFUROXIME [Concomitant]
     Indication: PROPHYLAXIS
     Dosage: 750 MG
     Route: 042
  11. CLONIDIN HCL [Concomitant]
     Indication: HYPERTENSION
     Dosage: 0.1 MG
     Route: 048
  12. BENDROFLUMETHIAZIDE [Concomitant]
     Indication: HYPERTENSION
     Route: 048
  13. OXYCODONE IMMEDIATE RELEASE [Concomitant]
     Dosage: 5 MG
  14. PERINDOPRIL ERBUMINE [Concomitant]
     Indication: HYPERTENSION
     Dosage: 4 MG
     Route: 048

REACTIONS (6)
  - BODY TEMPERATURE INCREASED [None]
  - HYPOTENSION [None]
  - CHEST PAIN [None]
  - OXYGEN SATURATION DECREASED [None]
  - PULMONARY EMBOLISM [None]
  - HEART RATE INCREASED [None]
